FAERS Safety Report 5789152-9 (Version None)
Quarter: 2008Q2

REPORT INFORMATION
  Report Type: 
  Country: None (occurrence: None)
  Receive Date: 20080626
  Receipt Date: 20080422
  Transmission Date: 20081010
  Serious: No
  Sender: FDA-Public Use
  Company Number: US-ASTRAZENECA-2008UW00237

PATIENT
  Age: 55 Year
  Sex: Male
  Weight: 77.1 kg

DRUGS (4)
  1. PULMICORT FLEXHALER [Suspect]
     Indication: ASTHMA
     Route: 055
     Dates: start: 20071120
  2. PULMICORT FLEXHALER [Suspect]
     Route: 055
     Dates: start: 20071120
  3. ALBUTEROL [Concomitant]
     Route: 055
  4. PULMICORT [Concomitant]
     Indication: ASTHMA
     Route: 055

REACTIONS (3)
  - ASTHMA [None]
  - DEVICE FAILURE [None]
  - WHEEZING [None]
